FAERS Safety Report 25599566 (Version 1)
Quarter: 2025Q3

REPORT INFORMATION
  Report Type: Report from Study
  Country: CA (occurrence: CA)
  Receive Date: 20250724
  Receipt Date: 20250724
  Transmission Date: 20251020
  Serious: Yes (Death)
  Sender: CSL BEHRING
  Company Number: CA-BEH-2025213758

PATIENT
  Age: 79 Year
  Sex: Female
  Weight: 65.8 kg

DRUGS (1)
  1. HIZENTRA [Suspect]
     Active Substance: HUMAN IMMUNOGLOBULIN G
     Indication: Primary immunodeficiency syndrome
     Dosage: 4 G, BIW
     Route: 058
     Dates: start: 20230103

REACTIONS (1)
  - Death [Fatal]
